FAERS Safety Report 20363053 (Version 1)
Quarter: 2022Q1

REPORT INFORMATION
  Report Type: Spontaneous
  Country: ES (occurrence: ES)
  Receive Date: 20220121
  Receipt Date: 20220121
  Transmission Date: 20220423
  Serious: Yes (Other)
  Sender: FDA-Public Use
  Company Number: ES-NOVARTISPH-NVSC2022ES011628

PATIENT
  Age: 58 Year
  Sex: Male

DRUGS (2)
  1. EZETIMIBE [Suspect]
     Active Substance: EZETIMIBE
     Indication: Low density lipoprotein increased
     Dosage: UNK
     Route: 065
     Dates: start: 20211027
  2. PRALUENT [Suspect]
     Active Substance: ALIROCUMAB
     Indication: Low density lipoprotein increased
     Dosage: 150 MG, Q2W ( QOW)
     Route: 065
     Dates: start: 20170309

REACTIONS (2)
  - Angina pectoris [Unknown]
  - Low density lipoprotein increased [Unknown]
